FAERS Safety Report 21410665 (Version 1)
Quarter: 2022Q4

REPORT INFORMATION
  Report Type: Spontaneous
  Country: US (occurrence: None)
  Receive Date: 20221004
  Receipt Date: 20221004
  Transmission Date: 20230112
  Serious: Yes (Hospitalization)
  Sender: FDA-Public Use
  Company Number: None

PATIENT
  Age: 77 Year
  Sex: Female
  Weight: 66.8 kg

DRUGS (1)
  1. ARIMIDEX [Suspect]
     Active Substance: ANASTROZOLE
     Dates: end: 20220811

REACTIONS (5)
  - Angina unstable [None]
  - Syncope [None]
  - Loss of consciousness [None]
  - Orthostatic hypotension [None]
  - Gout [None]

NARRATIVE: CASE EVENT DATE: 20220812
